FAERS Safety Report 9402571 (Version 1)
Quarter: 2013Q3

REPORT INFORMATION
  Report Type: Spontaneous
  Country: HR (occurrence: HR)
  Receive Date: 20130716
  Receipt Date: 20130716
  Transmission Date: 20140515
  Serious: Yes (Hospitalization)
  Sender: FDA-Public Use
  Company Number: HR-ROCHE-1248970

PATIENT
  Age: 59 Year
  Sex: Male
  Weight: 82.4 kg

DRUGS (4)
  1. PEGASYS [Suspect]
     Indication: CHRONIC HEPATITIS C
     Route: 023
     Dates: start: 20130318
  2. INCIVO [Suspect]
     Indication: CHRONIC HEPATITIS C
     Route: 048
     Dates: start: 20130318, end: 20130507
  3. COPEGUS [Concomitant]
     Indication: CHRONIC HEPATITIS C
     Route: 048
     Dates: start: 20130318
  4. IRUZID [Concomitant]
     Indication: HYPERTENSION
     Route: 048

REACTIONS (3)
  - Rash maculo-papular [Recovering/Resolving]
  - Nausea [Recovering/Resolving]
  - Eosinophilia [Recovering/Resolving]
